FAERS Safety Report 5141708-2 (Version None)
Quarter: 2006Q4

REPORT INFORMATION
  Report Type: 
  Country: None (occurrence: None)
  Receive Date: 20061026
  Receipt Date: 20061016
  Transmission Date: 20070319
  Serious: Yes (Hospitalization)
  Sender: FDA-Public Use
  Company Number: E2020-00599-SOL-US

PATIENT
  Age: 58 Year
  Sex: Male

DRUGS (1)
  1. ARICEPT [Suspect]
     Dosage: 5 MG, 1 IN 1 D, ORAL
     Route: 048
     Dates: start: 20060801, end: 20060101

REACTIONS (4)
  - CONVULSION [None]
  - DRUG INTOLERANCE [None]
  - FEELING ABNORMAL [None]
  - HEART RATE IRREGULAR [None]
